FAERS Safety Report 8511906 (Version 2)
Quarter: 2013Q3

REPORT INFORMATION
  Report Type: Spontaneous
  Country: US (occurrence: US)
  Receive Date: 20120413
  Receipt Date: 20130912
  Transmission Date: 20140515
  Serious: No
  Sender: FDA-Public Use
  Company Number: US-ASTRAZENECA-2011SE37243

PATIENT
  Age: 48 Year
  Sex: Male

DRUGS (1)
  1. NEXIUM [Suspect]
     Indication: GASTROOESOPHAGEAL REFLUX DISEASE
     Route: 048
     Dates: start: 2011

REACTIONS (10)
  - Peroneal nerve palsy [Unknown]
  - Musculoskeletal disorder [Unknown]
  - Impaired driving ability [Unknown]
  - Limb discomfort [Unknown]
  - Activities of daily living impaired [Unknown]
  - Dysgraphia [Unknown]
  - Vomiting [Unknown]
  - Depression [Unknown]
  - Intentional drug misuse [Unknown]
  - Drug dose omission [Unknown]
